FAERS Safety Report 8380272-1 (Version None)
Quarter: 2012Q2

REPORT INFORMATION
  Report Type: 
  Country: None (occurrence: None)
  Receive Date: 20120523
  Receipt Date: 20120521
  Transmission Date: 20120825
  Serious: Yes (Other)
  Sender: FDA-Public Use
  Company Number: PHEH2012US010560

PATIENT
  Sex: Female

DRUGS (1)
  1. GILENYA [Suspect]
     Indication: MULTIPLE SCLEROSIS
     Dosage: 0.5 MG, QD
     Route: 048
     Dates: start: 20110715, end: 20120417

REACTIONS (6)
  - HEADACHE [None]
  - DECREASED APPETITE [None]
  - VISUAL IMPAIRMENT [None]
  - WEIGHT DECREASED [None]
  - RASH [None]
  - DRUG INEFFECTIVE [None]
